FAERS Safety Report 5657836-9 (Version None)
Quarter: 2008Q1

REPORT INFORMATION
  Report Type: 
  Country: None (occurrence: None)
  Receive Date: 20080310
  Receipt Date: 20080124
  Transmission Date: 20080703
  Serious: Yes (Hospitalization)
  Sender: FDA-Public Use
  Company Number: US-ASTRAZENECA-2008UW01805

PATIENT
  Age: 63 Year
  Sex: Female

DRUGS (6)
  1. LISINOPRIL [Suspect]
     Route: 048
  2. EVISTA [Concomitant]
  3. LEVOTHYROXINE SODIUM [Concomitant]
  4. GLIPIZIDE [Concomitant]
  5. GLUCOPHAGE [Concomitant]
  6. METOPROLOL TARTRATE [Concomitant]

REACTIONS (1)
  - PANCREATITIS [None]
